FAERS Safety Report 11215806 (Version 1)
Quarter: 2015Q2

REPORT INFORMATION
  Report Type: Report from Study
  Country: US (occurrence: US)
  Receive Date: 20150624
  Receipt Date: 20150624
  Transmission Date: 20150821
  Serious: Yes (Other)
  Sender: FDA-Public Use
  Company Number: US-ASTELLAS-2015US021728

PATIENT
  Sex: Male

DRUGS (4)
  1. CETAPHIL                           /00498501/ [Concomitant]
     Indication: DERMATITIS ATOPIC
     Dosage: UNK UNK, UNKNOWN FREQ.
     Route: 065
  2. TACROLIMUS. [Suspect]
     Active Substance: TACROLIMUS
     Indication: DERMATITIS ATOPIC
     Dosage: 0.1 %, UNKNOWN FREQ.
     Route: 061
     Dates: start: 20051118
  3. GOLD BOND CREAM [Concomitant]
     Indication: DERMATITIS ATOPIC
     Dosage: UNK, UNKNOWN FREQ.
     Route: 065
  4. NEUTROGENA                         /00021201/ [Concomitant]
     Active Substance: SALICYLIC ACID
     Indication: DERMATITIS ATOPIC
     Dosage: UNK UNK, UNKNOWN FREQ.
     Route: 065

REACTIONS (2)
  - Juvenile melanoma benign [Unknown]
  - Off label use [Unknown]
